FAERS Safety Report 6209449-8 (Version None)
Quarter: 2009Q2

REPORT INFORMATION
  Report Type: 
  Country: None (occurrence: None)
  Receive Date: 20090522
  Receipt Date: 20090511
  Transmission Date: 20091009
  Serious: No
  Sender: FDA-Public Use
  Company Number: 006425

PATIENT
  Age: 71 Year
  Sex: Female

DRUGS (8)
  1. PLETAL [Suspect]
     Dosage: ORAL
     Route: 048
  2. MICARDIS [Concomitant]
  3. TEGRETOL [Concomitant]
  4. METHYCOBAL (MECOBALAMIN) [Concomitant]
  5. PARIET JPN (RABEPRAZOLE SODIUM) TABLET [Concomitant]
  6. GASLON N_OD (IRSOGLADINE MALEATE) TABLET [Concomitant]
  7. NORVASC [Concomitant]
  8. SELECTOL (CELIPROLOL HYDROCHLORIDE) TABLET [Concomitant]

REACTIONS (2)
  - ERYTHEMA MULTIFORME [None]
  - HYPOAESTHESIA [None]
